FAERS Safety Report 5909941-7 (Version None)
Quarter: 2008Q4

REPORT INFORMATION
  Report Type: 
  Country: None (occurrence: None)
  Receive Date: 20081006
  Receipt Date: 20081006
  Transmission Date: 20090506
  Serious: Yes (Life-Threatening, Hospitalization)
  Sender: FDA-Public Use
  Company Number: None

PATIENT
  Sex: Female
  Weight: 97.977 kg

DRUGS (2)
  1. VANCOMYCIN [Suspect]
     Indication: WOUND INFECTION
     Dosage: 1.5 GM Q12  IV
     Route: 042
     Dates: start: 20080919, end: 20080923
  2. VANCOMYCIN [Suspect]
     Dosage: 1 GM Q24 IV
     Route: 042
     Dates: start: 20080929, end: 20081002

REACTIONS (2)
  - BLOOD CREATININE INCREASED [None]
  - PRODUCT QUALITY ISSUE [None]
